FAERS Safety Report 25553777 (Version 1)
Quarter: 2025Q3

REPORT INFORMATION
  Report Type: Spontaneous
  Country: EU (occurrence: EU)
  Receive Date: 20250715
  Receipt Date: 20250715
  Transmission Date: 20251020
  Serious: Yes (Disabling)
  Sender: BRISTOL-MYERS SQUIBB COMPANY
  Company Number: EU-BRISTOL-MYERS SQUIBB COMPANY-2025-089233

PATIENT
  Age: 86 Year
  Sex: Male
  Weight: 80 kg

DRUGS (7)
  1. ELIQUIS [Suspect]
     Active Substance: APIXABAN
     Indication: Atrial fibrillation
     Route: 048
     Dates: start: 20250529
  2. ASPIRIN [Concomitant]
     Active Substance: ASPIRIN
     Indication: Prophylaxis
  3. FUROSEMIDE [Concomitant]
     Active Substance: FUROSEMIDE
     Indication: Renal failure
  4. TRETINOIN [Concomitant]
     Active Substance: TRETINOIN
     Indication: Product used for unknown indication
  5. PRIMACOR [Concomitant]
     Active Substance: MILRINONE LACTATE
     Indication: Hypertension
  6. OMEPRAZOLE [Concomitant]
     Active Substance: OMEPRAZOLE
     Indication: Product used for unknown indication
  7. METOPROLOL TARTRATE [Concomitant]
     Active Substance: METOPROLOL TARTRATE
     Indication: Coronary artery disease

REACTIONS (6)
  - Asthenia [Unknown]
  - Eye disorder [Unknown]
  - Prothrombin time prolonged [Unknown]
  - Activated partial thromboplastin time prolonged [Unknown]
  - Aspartate aminotransferase increased [Unknown]
  - Alanine aminotransferase increased [Unknown]

NARRATIVE: CASE EVENT DATE: 20250610
